FAERS Safety Report 4496918-4 (Version None)
Quarter: 2004Q3

REPORT INFORMATION
  Report Type: 
  Country: None (occurrence: None)
  Receive Date: 20040928
  Receipt Date: 20040721
  Transmission Date: 20050211
  Serious: No
  Sender: FDA-Public Use
  Company Number: 04P-163-0267705-00

PATIENT
  Age: 66 Year
  Sex: Female
  Weight: 63.9572 kg

DRUGS (9)
  1. HUMIRA [Suspect]
     Indication: RHEUMATOID ARTHRITIS
     Dosage: 40 MG, 1 IN 2 WK, SUBCUTANEOUS
     Route: 058
     Dates: start: 20031001, end: 20040701
  2. PREDNISONE [Concomitant]
  3. AMLODIPINE BESYLATE [Concomitant]
  4. AMITRIPTYLINE HCL [Concomitant]
  5. ROFECOXIB [Concomitant]
  6. SULFAZINE [Concomitant]
  7. FOLIC ACID [Concomitant]
  8. CYANOCOBALAMIN [Concomitant]
  9. IRON [Concomitant]

REACTIONS (2)
  - NEUROPATHY [None]
  - PERONEAL NERVE PALSY [None]
